FAERS Safety Report 7670059-7 (Version None)
Quarter: 2011Q3

REPORT INFORMATION
  Report Type: 
  Country: None (occurrence: None)
  Receive Date: 20110808
  Receipt Date: 20110728
  Transmission Date: 20111222
  Serious: Yes (Hospitalization)
  Sender: FDA-Public Use
  Company Number: US-BAYER-201039332NA

PATIENT
  Age: 35 Year
  Sex: Female
  Weight: 122 kg

DRUGS (8)
  1. CEFOXITIN [Concomitant]
  2. YASMIN [Suspect]
     Indication: ORAL CONTRACEPTION
     Route: 048
     Dates: start: 20041004, end: 20050823
  3. NUVARING [Concomitant]
  4. CEFADROXIL [Concomitant]
  5. YASMIN [Suspect]
     Route: 048
     Dates: start: 20070215, end: 20071031
  6. FLAX SEED OIL [Concomitant]
  7. ANALGESICS [Concomitant]
  8. YAZ [Suspect]
     Route: 048

REACTIONS (1)
  - CHOLECYSTITIS [None]
